FAERS Safety Report 18032656 (Version 2)
Quarter: 2020Q4

REPORT INFORMATION
  Report Type: Report from Study
  Country: US (occurrence: US)
  Receive Date: 20200716
  Receipt Date: 20201006
  Transmission Date: 20210113
  Serious: Yes (Other)
  Sender: FDA-Public Use
  Company Number: US-SHIRE-US202022156

PATIENT
  Sex: Male
  Weight: 70 kg

DRUGS (3)
  1. HUMAN NORMAL IMMUNOGLOBULIN [Suspect]
     Active Substance: HUMAN IMMUNOGLOBULIN G
     Indication: BRUTON^S AGAMMAGLOBULINAEMIA
     Dosage: UNK, UNKNOWN
     Route: 042
  2. HUMAN IMMUNOGLOBULIN; HYALURONIDASE [Suspect]
     Active Substance: HUMAN IMMUNOGLOBULIN G\HYALURONIDASE RECOMBINANT HUMAN
     Indication: IMMUNODEFICIENCY COMMON VARIABLE
  3. HUMAN IMMUNOGLOBULIN; HYALURONIDASE [Suspect]
     Active Substance: HUMAN IMMUNOGLOBULIN G\HYALURONIDASE RECOMBINANT HUMAN
     Indication: BRUTON^S AGAMMAGLOBULINAEMIA
     Dosage: 80 GRAM, UNKNOWN
     Route: 065

REACTIONS (8)
  - Ulcerative keratitis [Unknown]
  - Lactose intolerance [Unknown]
  - Crohn^s disease [Unknown]
  - Cough [Unknown]
  - Sneezing [Unknown]
  - Disability [Unknown]
  - Dyspepsia [Unknown]
  - Abdominal distension [Unknown]
